FAERS Safety Report 25130550 (Version 1)
Quarter: 2025Q1

REPORT INFORMATION
  Report Type: Other
  Country: GT (occurrence: GT)
  Receive Date: 20250327
  Receipt Date: 20250327
  Transmission Date: 20250409
  Serious: Yes (Other)
  Sender: TOLMAR
  Company Number: GT-TOLMAR, INC.-25GT057637

PATIENT
  Sex: Male

DRUGS (6)
  1. ELIGARD [Suspect]
     Active Substance: LEUPROLIDE ACETATE
     Indication: Prostate cancer
     Dosage: 45 MILLIGRAM, Q 6 MONTH
     Route: 058
     Dates: start: 20240901
  2. ELIGARD [Suspect]
     Active Substance: LEUPROLIDE ACETATE
     Indication: Prostate cancer
  3. ARDOSONS [Concomitant]
     Indication: Pain in extremity
     Dosage: 25 MILLIGRAM, EVENING
  4. ARDOSONS [Concomitant]
     Indication: Back pain
  5. DEXKETOPROFEN [Concomitant]
     Active Substance: DEXKETOPROFEN
     Indication: Pain in extremity
     Dosage: 25 MILLIGRAM, EVENING
  6. DEXKETOPROFEN [Concomitant]
     Active Substance: DEXKETOPROFEN
     Indication: Back pain

REACTIONS (6)
  - Decubitus ulcer [Not Recovered/Not Resolved]
  - Infected skin ulcer [Not Recovered/Not Resolved]
  - Anaemia [Not Recovered/Not Resolved]
  - Pain in extremity [Not Recovered/Not Resolved]
  - Back pain [Not Recovered/Not Resolved]
  - Insomnia [Unknown]
